FAERS Safety Report 6025901-2 (Version None)
Quarter: 2008Q4

REPORT INFORMATION
  Report Type: 
  Country: None (occurrence: None)
  Receive Date: 20081224
  Receipt Date: 20081217
  Transmission Date: 20090506
  Serious: Yes (Other)
  Sender: FDA-Public Use
  Company Number: CHPA2008US22575

PATIENT
  Age: 60 Year
  Sex: Male

DRUGS (3)
  1. EXCEDRIN (MIGRAINE) [Suspect]
     Indication: HEADACHE
     Dosage: ORAL
     Route: 048
  2. BETA BLOCKING AGENTS (NO INGREDIENTS SUBSTANCES) [Concomitant]
  3. ANTICOAGULANTS (ANTICOAGULANTS) [Concomitant]

REACTIONS (1)
  - CARDIAC OPERATION [None]
